FAERS Safety Report 5456642-8 (Version None)
Quarter: 2007Q3

REPORT INFORMATION
  Report Type: 
  Country: None (occurrence: None)
  Receive Date: 20070918
  Receipt Date: 20070330
  Transmission Date: 20080115
  Serious: Yes (Other)
  Sender: FDA-Public Use
  Company Number: US-ASTRAZENECA-2006UW25647

PATIENT
  Age: 58 Year
  Sex: Female
  Weight: 94.5 kg

DRUGS (8)
  1. SEROQUEL [Suspect]
     Indication: SLEEP DISORDER
     Route: 048
  2. SEROQUEL [Suspect]
     Route: 048
  3. RISPERDAL [Concomitant]
  4. ZYPREXA [Concomitant]
  5. HYDROXYZINE [Concomitant]
  6. PROZAC [Concomitant]
  7. PERPHENAZINE [Concomitant]
  8. TRAZODONE HCL [Concomitant]

REACTIONS (1)
  - PANCREATITIS [None]
